FAERS Safety Report 19979789 (Version 7)
Quarter: 2023Q1

REPORT INFORMATION
  Report Type: Spontaneous
  Country: US (occurrence: US)
  Receive Date: 20211021
  Receipt Date: 20230103
  Transmission Date: 20230418
  Serious: Yes (Other)
  Sender: FDA-Public Use
  Company Number: US-GLAXOSMITHKLINE-US2021216347

PATIENT
  Age: 44 Year
  Sex: Female

DRUGS (7)
  1. ZEJULA [Suspect]
     Active Substance: NIRAPARIB
     Indication: Ovarian cancer
     Dosage: 100 MG, BID
     Dates: start: 202008
  2. ZEJULA [Suspect]
     Active Substance: NIRAPARIB
     Dosage: 200 MG, QD
     Dates: start: 20210923, end: 20211015
  3. ZEJULA [Suspect]
     Active Substance: NIRAPARIB
     Dosage: 100 MG, QD
     Dates: start: 2021
  4. ZEJULA [Suspect]
     Active Substance: NIRAPARIB
     Dosage: 200 MG, QD
  5. ZEJULA [Suspect]
     Active Substance: NIRAPARIB
     Dosage: 100 MG, QD
     Route: 048
  6. ZEJULA [Suspect]
     Active Substance: NIRAPARIB
     Dosage: 100 MG, QD
     Route: 048
  7. COVID 19 VACCINE BOOSTER [Concomitant]
     Indication: Product used for unknown indication
     Dosage: UNK

REACTIONS (13)
  - Thrombocytopenia [Unknown]
  - Platelet count decreased [Recovered/Resolved]
  - Nausea [Unknown]
  - Insomnia [Recovered/Resolved]
  - Laryngitis [Unknown]
  - Stomatitis [Recovered/Resolved]
  - Coronavirus test positive [Unknown]
  - Coronavirus infection [Not Recovered/Not Resolved]
  - Limb discomfort [Unknown]
  - Neuralgia [Unknown]
  - Arthralgia [Unknown]
  - Asthenia [Unknown]
  - Mobility decreased [Unknown]

NARRATIVE: CASE EVENT DATE: 20210901
